FAERS Safety Report 24732436 (Version 2)
Quarter: 2025Q1

REPORT INFORMATION
  Report Type: Spontaneous
  Country: FR (occurrence: FR)
  Receive Date: 20241213
  Receipt Date: 20250116
  Transmission Date: 20250408
  Serious: Yes (Hospitalization, Other)
  Sender: ALEXION PHARMACEUTICALS
  Company Number: None

PATIENT
  Age: 89 Year

DRUGS (10)
  1. CRESTOR [Interacting]
     Active Substance: ROSUVASTATIN CALCIUM
     Indication: Product used for unknown indication
     Route: 065
  2. LEVOFLOXACIN [Interacting]
     Active Substance: LEVOFLOXACIN
     Indication: Skin necrosis
     Dosage: 250 MILLIGRAM, 1/DAY
  3. LEVOFLOXACIN [Interacting]
     Active Substance: LEVOFLOXACIN
     Indication: Staphylococcal infection
  4. PREDNISONE [Interacting]
     Active Substance: PREDNISONE
     Indication: Polyarthritis
     Dosage: 30 MILLIGRAM, 1/DAY
  5. COUMADIN [Interacting]
     Active Substance: WARFARIN SODIUM
     Indication: Product used for unknown indication
     Route: 065
  6. OXACILLIN [Concomitant]
     Active Substance: OXACILLIN SODIUM
     Indication: Skin necrosis
  7. OXACILLIN [Concomitant]
     Active Substance: OXACILLIN SODIUM
     Indication: Staphylococcal infection
     Dosage: 8 GRAM, 1/DAY
  8. FUROSEMIDE [Concomitant]
     Active Substance: FUROSEMIDE
     Indication: Product used for unknown indication
  9. ACETAMINOPHEN [Concomitant]
     Active Substance: ACETAMINOPHEN
     Indication: Product used for unknown indication
  10. BISOPROLOL [Concomitant]
     Active Substance: BISOPROLOL
     Indication: Product used for unknown indication

REACTIONS (6)
  - Joint microhaemorrhage [Unknown]
  - Ecchymosis [Recovering/Resolving]
  - Tendon disorder [Not Recovered/Not Resolved]
  - Haemarthrosis [Recovered/Resolved with Sequelae]
  - Rotator cuff syndrome [Recovered/Resolved with Sequelae]
  - Drug interaction [Unknown]
